FAERS Safety Report 11278268 (Version 6)
Quarter: 2016Q1

REPORT INFORMATION
  Report Type: Report from Study
  Country: GB (occurrence: GB)
  Receive Date: 20150717
  Receipt Date: 20160229
  Transmission Date: 20160525
  Serious: Yes (Other)
  Sender: FDA-Public Use
  Company Number: GB-ROCHE-1608708

PATIENT
  Sex: Male
  Weight: 76.2 kg

DRUGS (3)
  1. ESBRIET [Suspect]
     Active Substance: PIRFENIDONE
     Indication: IDIOPATHIC PULMONARY FIBROSIS
     Route: 048
     Dates: start: 20150430
  2. RANITIDIN [Concomitant]
     Active Substance: RANITIDINE HYDROCHLORIDE
  3. PANTOPRAZOLE [Concomitant]
     Active Substance: PANTOPRAZOLE SODIUM

REACTIONS (7)
  - Nausea [Unknown]
  - Photosensitivity reaction [Unknown]
  - Lower respiratory tract infection [Unknown]
  - Oxygen saturation decreased [Unknown]
  - Weight decreased [Not Recovered/Not Resolved]
  - Decreased appetite [Recovering/Resolving]
  - Dyspnoea exertional [Unknown]
